FAERS Safety Report 5522654-9 (Version None)
Quarter: 2007Q4

REPORT INFORMATION
  Report Type: 
  Country: None (occurrence: None)
  Receive Date: 20071120
  Receipt Date: 20071119
  Transmission Date: 20080405
  Serious: Yes (Hospitalization)
  Sender: FDA-Public Use
  Company Number: US-SHR-US-2007-030293

PATIENT
  Age: 39 Year
  Sex: Female

DRUGS (5)
  1. BETASERON [Suspect]
     Indication: RELAPSING-REMITTING MULTIPLE SCLEROSIS
     Dosage: 4 MIU, EVERY 2D
     Route: 058
     Dates: start: 20070721
  2. FENTANYL [Concomitant]
     Route: 061
  3. CYMBALTA [Concomitant]
  4. DILAUDID [Concomitant]
     Route: 050
  5. DILAUDID [Concomitant]
     Route: 048

REACTIONS (2)
  - CELLULITIS [None]
  - PHARYNGITIS STREPTOCOCCAL [None]
